FAERS Safety Report 23755466 (Version 3)
Quarter: 2024Q4

REPORT INFORMATION
  Report Type: Report from Study
  Country: CA (occurrence: CA)
  Receive Date: 20240418
  Receipt Date: 20241217
  Transmission Date: 20250115
  Serious: Yes (Hospitalization)
  Sender: NOVARTIS
  Company Number: CA-002147023-NVSC2024CA079291

PATIENT
  Age: 22 Month
  Sex: Male
  Weight: 17.1 kg

DRUGS (4)
  1. ZYKADIA [Suspect]
     Active Substance: CERITINIB
     Indication: Anaplastic lymphoma kinase gene mutation
     Dosage: 300 MG, QD
     Route: 048
     Dates: start: 20240404, end: 20240411
  2. ZYKADIA [Suspect]
     Active Substance: CERITINIB
     Indication: Neuroblastoma
  3. ONDANSETRON [Concomitant]
     Active Substance: ONDANSETRON
     Indication: Product used for unknown indication
     Dosage: UNK
     Route: 065
  4. VITAMIN D NOS [Concomitant]
     Active Substance: CHOLECALCIFEROL\ERGOCALCIFEROL
     Indication: Product used for unknown indication
     Dosage: UNK
     Route: 065

REACTIONS (4)
  - Pancreatitis [Recovered/Resolved]
  - Abdominal tenderness [Recovered/Resolved]
  - Decreased appetite [Recovered/Resolved]
  - Vomiting [Recovered/Resolved]

NARRATIVE: CASE EVENT DATE: 20240411
